FAERS Safety Report 12186685 (Version 1)
Quarter: 2016Q1

REPORT INFORMATION
  Report Type: Spontaneous
  Country: US (occurrence: None)
  Receive Date: 20160316
  Receipt Date: 20160316
  Transmission Date: 20160526
  Serious: Yes (Hospitalization)
  Sender: FDA-Public Use
  Company Number: None

PATIENT
  Age: 94 Year
  Sex: Male
  Weight: 88.2 kg

DRUGS (1)
  1. VANCOMYCIN [Suspect]
     Active Substance: VANCOMYCIN
     Indication: CELLULITIS
     Route: 042
     Dates: start: 20151016, end: 20151018

REACTIONS (5)
  - Hepatic enzyme increased [None]
  - Urticaria [None]
  - Hypersensitivity [None]
  - Pruritus [None]
  - Eosinophil count increased [None]

NARRATIVE: CASE EVENT DATE: 20151017
